FAERS Safety Report 5144091-1 (Version None)
Quarter: 2006Q4

REPORT INFORMATION
  Report Type: 
  Country: None (occurrence: None)
  Receive Date: 20061106
  Receipt Date: 20061027
  Transmission Date: 20070319
  Serious: Yes (Life-Threatening)
  Sender: FDA-Public Use
  Company Number: FR-GLAXOSMITHKLINE-B0445194A

PATIENT
  Sex: Female

DRUGS (7)
  1. AUGMENTIN '125' [Suspect]
     Dates: start: 20060301, end: 20060308
  2. PREDNISOLONE [Suspect]
     Dates: start: 20060313, end: 20060321
  3. TROSPIUM CHLORIDE [Suspect]
     Indication: URINARY INCONTINENCE
     Dates: start: 20051015, end: 20060410
  4. GADOPENTETIC ACID [Suspect]
     Dates: start: 20060317
  5. EFFEXOR [Suspect]
     Indication: DEPRESSION
     Dosage: 75MG PER DAY
     Dates: start: 20020415, end: 20060410
  6. NICOPATCH [Concomitant]
     Indication: SMOKING CESSATION THERAPY
     Dates: start: 20060814, end: 20060904
  7. QUINOLONE [Concomitant]
     Dates: start: 20060313, end: 20060321

REACTIONS (6)
  - CARDIAC DISORDER [None]
  - CONGENITAL TRICUSPID VALVE ATRESIA [None]
  - DRUG EXPOSURE DURING PREGNANCY [None]
  - FOETAL GROWTH RETARDATION [None]
  - PULMONARY VALVE STENOSIS [None]
  - VENTRICULAR SEPTAL DEFECT [None]
